FAERS Safety Report 7744834-4 (Version None)
Quarter: 2011Q3

REPORT INFORMATION
  Report Type: 
  Country: None (occurrence: None)
  Receive Date: 20110912
  Receipt Date: 20110905
  Transmission Date: 20111222
  Serious: Yes (Death, Other)
  Sender: FDA-Public Use
  Company Number: ZA-GILEAD-2011-0043752

PATIENT
  Sex: Male

DRUGS (1)
  1. ATRIPLA [Suspect]
     Indication: HIV INFECTION

REACTIONS (4)
  - IMMUNE RECONSTITUTION SYNDROME [None]
  - RECTAL HAEMORRHAGE [None]
  - PNEUMONIA [None]
  - JAUNDICE [None]
